FAERS Safety Report 5450163-4 (Version None)
Quarter: 2007Q3

REPORT INFORMATION
  Report Type: 
  Country: None (occurrence: None)
  Receive Date: 20070912
  Receipt Date: 20070904
  Transmission Date: 20080115
  Serious: Yes (Other)
  Sender: FDA-Public Use
  Company Number: B0486718A

PATIENT
  Age: 69 Year
  Sex: Female
  Weight: 65 kg

DRUGS (8)
  1. AVANDIA [Suspect]
     Indication: DRUG USE FOR UNKNOWN INDICATION
     Dosage: 8MG PER DAY
     Route: 048
     Dates: start: 20021215, end: 20070801
  2. ATORVASTATIN [Concomitant]
     Route: 048
     Dates: start: 20001023
  3. DIGOXIN [Concomitant]
     Route: 048
     Dates: start: 19990222
  4. FUROSEMIDE [Concomitant]
     Route: 048
     Dates: start: 19990222
  5. GLICLAZIDE [Concomitant]
     Route: 048
     Dates: start: 20000707
  6. LISINOPRIL [Concomitant]
     Route: 048
     Dates: start: 19990222
  7. VERAPAMIL [Concomitant]
     Route: 048
     Dates: start: 19990202
  8. WARFARIN SODIUM [Concomitant]
     Route: 048
     Dates: start: 20021205

REACTIONS (2)
  - DYSPNOEA [None]
  - OEDEMA PERIPHERAL [None]
